FAERS Safety Report 18792651 (Version 1)
Quarter: 2021Q1

REPORT INFORMATION
  Report Type: Spontaneous
  Country: US (occurrence: US)
  Receive Date: 20210127
  Receipt Date: 20210127
  Transmission Date: 20210419
  Serious: No
  Sender: FDA-Public Use
  Company Number: US-ALLERGAN-2020885US

PATIENT
  Age: 54 Year
  Sex: Female

DRUGS (2)
  1. ALORA [Suspect]
     Active Substance: ESTRADIOL
     Indication: OSTEOPOROSIS PROPHYLAXIS
  2. ALORA [Suspect]
     Active Substance: ESTRADIOL
     Indication: MENOPAUSAL SYMPTOMS
     Dosage: 1 PATCH ON MONDAYS AND 1 PATCH ON THURSDAYS
     Route: 062

REACTIONS (2)
  - Administration site mass [Unknown]
  - Drug intolerance [Unknown]
